FAERS Safety Report 8610925-9 (Version None)
Quarter: 2012Q3

REPORT INFORMATION
  Report Type: 
  Country: None (occurrence: None)
  Receive Date: 20120808
  Receipt Date: 20120725
  Transmission Date: 20120928
  Serious: Yes (Death, Hospitalization, Other)
  Sender: FDA-Public Use
  Company Number: 2012MA009119

PATIENT
  Age: 43 Year
  Sex: Male

DRUGS (3)
  1. KADIAN [Suspect]
  2. DILTIAZEM HYDROCHLORIDE [Suspect]
  3. MIDAZOLAM [Concomitant]

REACTIONS (12)
  - CARDIO-RESPIRATORY ARREST [None]
  - COMPLETED SUICIDE [None]
  - ANOXIA [None]
  - BLOOD GLUCOSE DECREASED [None]
  - BRAIN DEATH [None]
  - BRAIN OEDEMA [None]
  - BALANCE DISORDER [None]
  - CARDIOMYOPATHY [None]
  - MYOCARDIAL ISCHAEMIA [None]
  - PULMONARY OEDEMA [None]
  - TOXICITY TO VARIOUS AGENTS [None]
  - HEPATOSPLENOMEGALY [None]
